FAERS Safety Report 19241452 (Version 1)
Quarter: 2021Q2

REPORT INFORMATION
  Report Type: Spontaneous
  Country: US (occurrence: US)
  Receive Date: 20210511
  Receipt Date: 20210511
  Transmission Date: 20210717
  Serious: Yes (Life-Threatening, Hospitalization)
  Sender: FDA-Public Use
  Company Number: None

PATIENT
  Age: 17 Year
  Sex: Female
  Weight: 77.3 kg

DRUGS (1)
  1. FENTANYL 50 MCG [Suspect]
     Active Substance: FENTANYL
     Indication: SEDATIVE THERAPY
     Route: 042
     Dates: start: 20210407

REACTIONS (3)
  - Apnoea [None]
  - Acute respiratory failure [None]
  - Chest pain [None]

NARRATIVE: CASE EVENT DATE: 20210409
